FAERS Safety Report 7224845-8 (Version None)
Quarter: 2011Q1

REPORT INFORMATION
  Report Type: 
  Country: None (occurrence: None)
  Receive Date: 20110104
  Receipt Date: 20110104
  Transmission Date: 20110831
  Serious: Yes (Disabling)
  Sender: FDA-Public Use
  Company Number: 2010AP002685

PATIENT
  Age: 64 Year
  Sex: Female

DRUGS (2)
  1. ETANERCEPT (ETANERCEPT) [Concomitant]
  2. ALENDRONATE SODIUM [Suspect]
     Indication: OSTEOPOROSIS
     Dosage: 70 MG; PO
     Route: 048
     Dates: start: 20100629, end: 20100721

REACTIONS (1)
  - DIARRHOEA HAEMORRHAGIC [None]
